FAERS Safety Report 8773865 (Version 1)
Quarter: 2012Q4

REPORT INFORMATION
  Report Type: 
  Country: US (occurrence: US)
  Receive Date: 20120907
  Receipt Date: 20120907
  Transmission Date: 20130627
  Serious: No
  Sender: FDA-Public Use
  Company Number: US-PFIZER INC-2012218689

PATIENT
  Sex: Male

DRUGS (3)
  1. IBUPROFEN [Suspect]
     Indication: TOOTHACHE
     Dosage: UNK, two times a day
     Route: 048
  2. IBUPROFEN [Suspect]
     Indication: PYREXIA
  3. IBUPROFEN [Suspect]
     Indication: HEADACHE

REACTIONS (2)
  - Drug ineffective [Unknown]
  - Incorrect dose administered [Unknown]
